FAERS Safety Report 8290053-5 (Version None)
Quarter: 2012Q2

REPORT INFORMATION
  Report Type: 
  Country: None (occurrence: None)
  Receive Date: 20120417
  Receipt Date: 20120415
  Transmission Date: 20120825
  Serious: Yes (Other)
  Sender: FDA-Public Use
  Company Number: US-PFIZER INC-2012093376

PATIENT
  Sex: Female
  Weight: 99.7 kg

DRUGS (4)
  1. IBUPROFEN (ADVIL) [Suspect]
     Indication: ARTHRALGIA
     Dosage: 400 MG (2 OF 200MG), 1X/DAY
     Route: 048
     Dates: start: 20120413, end: 20120413
  2. PREVACID [Concomitant]
     Indication: GASTROOESOPHAGEAL REFLUX DISEASE
     Dosage: UNK
  3. TENORMIN [Interacting]
     Indication: HYPERTENSION
     Dosage: 25 MG, 1X/DAY
     Route: 048
     Dates: start: 19890101
  4. SYNTHROID [Concomitant]
     Dosage: UNK
     Dates: start: 19890101

REACTIONS (3)
  - DRUG INTERACTION [None]
  - FEAR [None]
  - ANGINA PECTORIS [None]
